FAERS Safety Report 20905044 (Version 3)
Quarter: 2022Q3

REPORT INFORMATION
  Report Type: Spontaneous
  Country: GB (occurrence: GB)
  Receive Date: 20220602
  Receipt Date: 20220719
  Transmission Date: 20221027
  Serious: No
  Sender: FDA-Public Use
  Company Number: GB-PFIZER INC-202200730682

PATIENT
  Age: 77 Year
  Sex: Male

DRUGS (1)
  1. PAXLOVID [Suspect]
     Active Substance: NIRMATRELVIR\RITONAVIR
     Indication: COVID-19 treatment
     Dosage: 2 DF
     Dates: start: 20220516, end: 20220518

REACTIONS (5)
  - Product use issue [Unknown]
  - Product use complaint [Unknown]
  - Product size issue [Unknown]
  - Muscle spasms [Unknown]
  - Diarrhoea [Unknown]
